FAERS Safety Report 8514830-8 (Version None)
Quarter: 2012Q3

REPORT INFORMATION
  Report Type: 
  Country: None (occurrence: None)
  Receive Date: 20120717
  Receipt Date: 20120619
  Transmission Date: 20120928
  Serious: Yes (Death)
  Sender: FDA-Public Use
  Company Number: VN-BAXTER-2012BAX010292

PATIENT
  Sex: Male

DRUGS (2)
  1. DIANEAL [Suspect]
     Route: 033
     Dates: start: 20100520
  2. DIANEAL [Suspect]
     Route: 033
     Dates: start: 20100520

REACTIONS (3)
  - PERITONITIS BACTERIAL [None]
  - MALNUTRITION [None]
  - PYREXIA [None]
